FAERS Safety Report 9411193 (Version 1)
Quarter: 2013Q3

REPORT INFORMATION
  Report Type: Spontaneous
  Country: US (occurrence: US)
  Receive Date: 20130722
  Receipt Date: 20130722
  Transmission Date: 20140515
  Serious: Yes (Other)
  Sender: FDA-Public Use
  Company Number: US-MYLANLABS-2013S1015433

PATIENT
  Sex: Female

DRUGS (3)
  1. LEVETIRACETAM TABLETS [Suspect]
     Indication: CONVULSION
  2. LEVETIRACETAM TABLETS [Suspect]
     Indication: CONVULSION
  3. DECADRON [Suspect]

REACTIONS (5)
  - Convulsion [Not Recovered/Not Resolved]
  - Fatigue [Not Recovered/Not Resolved]
  - Listless [Not Recovered/Not Resolved]
  - Asthenia [Not Recovered/Not Resolved]
  - Tinnitus [Not Recovered/Not Resolved]
